FAERS Safety Report 5890949-5 (Version None)
Quarter: 2008Q3

REPORT INFORMATION
  Report Type: 
  Country: None (occurrence: None)
  Receive Date: 20080922
  Receipt Date: 20080915
  Transmission Date: 20090109
  Serious: Yes (Death)
  Sender: FDA-Public Use
  Company Number: A0745211A

PATIENT
  Age: 6 Year
  Sex: Female
  Weight: 20 kg

DRUGS (4)
  1. ADVAIR DISKUS 100/50 [Suspect]
     Indication: ASTHMA
     Dosage: 2PUFF TWICE PER DAY
     Route: 055
     Dates: start: 20080613
  2. ALBUTEROL [Concomitant]
     Indication: ASTHMA
     Dosage: 2PUFF AS REQUIRED
     Route: 045
     Dates: start: 20060313
  3. ALBUTEROL [Concomitant]
     Indication: ASTHMA
     Dosage: 1NEB AS REQUIRED
     Route: 055
     Dates: start: 20060313
  4. ELOCON [Concomitant]
     Indication: ECZEMA
     Route: 061
     Dates: start: 20060313

REACTIONS (7)
  - DEPRESSED LEVEL OF CONSCIOUSNESS [None]
  - DRUG INEFFECTIVE [None]
  - DYSPNOEA EXERTIONAL [None]
  - RESUSCITATION [None]
  - STATUS ASTHMATICUS [None]
  - UNDERDOSE [None]
  - UNRESPONSIVE TO STIMULI [None]
